FAERS Safety Report 13071402 (Version 4)
Quarter: 2023Q4

REPORT INFORMATION
  Report Type: Spontaneous
  Country: US (occurrence: US)
  Receive Date: 20161229
  Receipt Date: 20231202
  Transmission Date: 20240110
  Serious: Yes (Other)
  Sender: FDA-Public Use
  Company Number: US-BAYER-2016-246337

PATIENT
  Sex: Female
  Weight: 72.562 kg

DRUGS (2)
  1. MIRENA [Suspect]
     Active Substance: LEVONORGESTREL
     Indication: Contraception
     Dosage: 20 MCG/24HR, CONT
     Route: 015
     Dates: start: 2007, end: 20170615
  2. MIRENA [Suspect]
     Active Substance: LEVONORGESTREL
     Indication: Heavy menstrual bleeding

REACTIONS (5)
  - Uterine perforation [None]
  - Device use issue [None]
  - Heavy menstrual bleeding [None]
  - Anaemia [None]
  - Menstruation irregular [None]

NARRATIVE: CASE EVENT DATE: 20120101
